FAERS Safety Report 21164759 (Version 1)
Quarter: 2022Q3

REPORT INFORMATION
  Report Type: Spontaneous
  Country: CA (occurrence: CA)
  Receive Date: 20220803
  Receipt Date: 20220803
  Transmission Date: 20221027
  Serious: Yes (Hospitalization, Other)
  Sender: FDA-Public Use
  Company Number: CA-BAXTER-2022BAX016442

PATIENT
  Age: 57 Year
  Sex: Male
  Weight: 80 kg

DRUGS (5)
  1. CYCLOPHOSPHAMIDE [Suspect]
     Active Substance: CYCLOPHOSPHAMIDE
     Indication: Product used for unknown indication
     Dosage: 1 MG/M2, 1 EVERY 14 DAYS, DOSAGE FORM: POWDER FOR SOLUTION INTRAVENOUS (ROUTE: INTRAVENOUS NOT OTHER
     Route: 042
  2. DOXORUBICIN [Suspect]
     Active Substance: DOXORUBICIN
     Indication: Product used for unknown indication
     Dosage: 50 MG/M2, 1 EVERY 14 DAYS, DOSAGE FORM: SOLUTION INTRAVENOUS (ROUTE: INTRAVENOUS NOT OTHERWISE SPECI
     Route: 042
  3. TRUXIMA [Suspect]
     Active Substance: RITUXIMAB-ABBS
     Indication: Product used for unknown indication
     Dosage: 375 MG/M2, 1 EVERY 14 DAYS, SINGLE DOSE VIAL DOSAGE FORM: SOLUTION INTRAVENOUS (ROUTE: INTRAVENOUS N
     Route: 042
  4. VINCRISTINE SULFATE [Suspect]
     Active Substance: VINCRISTINE SULFATE
     Indication: Product used for unknown indication
     Dosage: 750 MG/M2, 1 EVERY 14 DAYS, DOSAGE FORM: SOLUTION INTRAVENOUS (ROUTE: INTRAVENOUS NOT OTHERWISE SPEC
     Route: 042
  5. PIPERACILLIN AND TAZOBACTAM [Concomitant]
     Active Substance: PIPERACILLIN SODIUM\TAZOBACTAM SODIUM
     Indication: Product used for unknown indication
     Dosage: DOSAGE FORM: POWDER FOR SOLUTION INTRAVENOUS
     Route: 065

REACTIONS (5)
  - Megacolon [Not Recovered/Not Resolved]
  - Colectomy [Not Recovered/Not Resolved]
  - Pseudomembranous colitis [Not Recovered/Not Resolved]
  - Clostridium difficile colitis [Not Recovered/Not Resolved]
  - Pyrexia [Not Recovered/Not Resolved]
